FAERS Safety Report 15311035 (Version 1)
Quarter: 2018Q3

REPORT INFORMATION
  Report Type: Spontaneous
  Country: US (occurrence: US)
  Receive Date: 20180814
  Receipt Date: 20180814
  Transmission Date: 20181010
  Serious: No
  Sender: FDA-Public Use
  Company Number: None

PATIENT
  Age: 4 Month
  Sex: Female
  Weight: 27 kg

DRUGS (2)
  1. LEVOTHYROXIN [Suspect]
     Active Substance: LEVOTHYROXINE
     Indication: HYPOTHYROIDISM
     Dosage: ?          QUANTITY:30 DF DOSAGE FORM;?
     Route: 048
     Dates: start: 20180714, end: 20180724
  2. METFROMIN [Concomitant]

REACTIONS (6)
  - Depressed mood [None]
  - Nervousness [None]
  - Dizziness [None]
  - Nausea [None]
  - Malaise [None]
  - Cold sweat [None]

NARRATIVE: CASE EVENT DATE: 20180714
